FAERS Safety Report 4485601-7 (Version None)
Quarter: 2004Q4

REPORT INFORMATION
  Report Type: 
  Country: None (occurrence: None)
  Receive Date: 20041026
  Receipt Date: 20041015
  Transmission Date: 20050328
  Serious: Yes (Hospitalization, Other)
  Sender: FDA-Public Use
  Company Number: DE-JNJFOC-20040103245

PATIENT
  Sex: Female
  Weight: 98 kg

DRUGS (15)
  1. RISPERDAL CONSTA [Suspect]
     Route: 030
  2. RISPERDAL CONSTA [Suspect]
     Route: 030
  3. HALOPERIDOL [Suspect]
     Route: 049
  4. PRONEURIN [Concomitant]
     Dosage: AT NIGHT
     Route: 049
  5. PRONEURIN [Concomitant]
     Dosage: ^CHANGED TO 0-0-1-2^
     Route: 049
  6. PRONEURIN [Concomitant]
     Route: 049
  7. PRONEURIN [Concomitant]
     Route: 049
  8. PRONEURIN [Concomitant]
     Indication: RESTLESSNESS
     Dosage: TAKEN AT NIGHT
     Route: 049
  9. AMITRIPTYLIN [Concomitant]
     Dosage: 4X1
     Route: 049
  10. AMITRIPTYLIN [Concomitant]
     Dosage: SWITCHED TO PROMETHAZINE
     Route: 049
  11. BIPERIDEN HYDROCHLORIDE TAB [Concomitant]
  12. BIPERIDEN HYDROCHLORIDE TAB [Concomitant]
  13. LORAZEPAM [Concomitant]
  14. RADEDORM [Concomitant]
  15. STILNOX [Concomitant]
     Dosage: ^0-0-1^

REACTIONS (12)
  - APATHY [None]
  - ASTHENIA [None]
  - BLOOD PROLACTIN INCREASED [None]
  - CONDITION AGGRAVATED [None]
  - DECREASED INTEREST [None]
  - DRUG INTERACTION [None]
  - FATIGUE [None]
  - INJURY [None]
  - MENSTRUATION IRREGULAR [None]
  - PSYCHOTIC DISORDER [None]
  - REFUSAL OF TREATMENT BY PATIENT [None]
  - SUICIDE ATTEMPT [None]
